FAERS Safety Report 25762597 (Version 3)
Quarter: 2025Q4

REPORT INFORMATION
  Report Type: Spontaneous
  Country: US (occurrence: US)
  Receive Date: 20250904
  Receipt Date: 20251018
  Transmission Date: 20260118
  Serious: No
  Sender: SANOFI AVENTIS
  Company Number: US-SA-2025SA262333

PATIENT
  Age: 80 Year
  Sex: Male
  Weight: 92.73 kg

DRUGS (1)
  1. DUPIXENT [Suspect]
     Active Substance: DUPILUMAB
     Indication: Dermatitis atopic
     Dosage: 600 MG, 1X
     Route: 058
     Dates: start: 20250807, end: 20250807

REACTIONS (5)
  - Rhinorrhoea [Unknown]
  - Nasal obstruction [Unknown]
  - Rash macular [Unknown]
  - Mental disorder [Unknown]
  - Nasal congestion [Unknown]

NARRATIVE: CASE EVENT DATE: 20250101
